FAERS Safety Report 13820305 (Version 1)
Quarter: 2017Q3

REPORT INFORMATION
  Report Type: Spontaneous
  Country: US (occurrence: US)
  Receive Date: 20170801
  Receipt Date: 20170801
  Transmission Date: 20171127
  Serious: No
  Sender: FDA-Public Use
  Company Number: US-TEVA-758157ACC

PATIENT
  Sex: Male
  Weight: 99.79 kg

DRUGS (1)
  1. NICOTINE. [Suspect]
     Active Substance: NICOTINE
     Dosage: FORM OF ADMINISTRATION: GUM

REACTIONS (1)
  - Drug ineffective [Unknown]
